FAERS Safety Report 10589965 (Version 1)
Quarter: 2014Q4

REPORT INFORMATION
  Report Type: Spontaneous
  Country: IT (occurrence: IT)
  Receive Date: 20141118
  Receipt Date: 20141118
  Transmission Date: 20150529
  Serious: Yes (Other)
  Sender: FDA-Public Use
  Company Number: IT-ELI_LILLY_AND_COMPANY-IT201411003658

PATIENT
  Age: 77 Year
  Sex: Female

DRUGS (1)
  1. FORSTEO [Suspect]
     Active Substance: TERIPARATIDE
     Indication: PRODUCT USED FOR UNKNOWN INDICATION
     Dosage: UNK UNK, UNKNOWN
     Route: 065
     Dates: start: 20141025

REACTIONS (7)
  - Influenza [Unknown]
  - Cough [Unknown]
  - Breast cancer [Unknown]
  - Pharyngitis bacterial [Unknown]
  - Discomfort [Unknown]
  - Nasopharyngitis [Unknown]
  - Pyrexia [Unknown]
